FAERS Safety Report 5138092-7 (Version None)
Quarter: 2006Q4

REPORT INFORMATION
  Report Type: 
  Country: None (occurrence: None)
  Receive Date: 20061030
  Receipt Date: 20060413
  Transmission Date: 20070319
  Serious: No
  Sender: FDA-Public Use
  Company Number: US-GLAXOSMITHKLINE-A0601713A

PATIENT
  Age: 61 Year
  Sex: Male

DRUGS (8)
  1. ADVAIR HFA [Suspect]
     Indication: CHRONIC OBSTRUCTIVE PULMONARY DISEASE
     Dosage: 1PUFF TWICE PER DAY
     Route: 055
     Dates: start: 20060326, end: 20060329
  2. FLOVENT [Suspect]
     Indication: ASTHMA
     Dosage: 2PUFF TWICE PER DAY
     Route: 055
     Dates: start: 20040101, end: 20040101
  3. SEREVENT [Suspect]
     Indication: CHRONIC OBSTRUCTIVE PULMONARY DISEASE
     Dosage: 1PUFF UNKNOWN
     Route: 055
     Dates: start: 20040819, end: 20040801
  4. NIFEDIPINE [Concomitant]
  5. BUSPAR [Concomitant]
  6. HYDROCHLOROTHIAZIDE [Concomitant]
  7. CENTRUM SILVER [Concomitant]
  8. ASPIRIN [Concomitant]

REACTIONS (3)
  - INSOMNIA [None]
  - JOINT CONTRACTURE [None]
  - MUSCLE SPASMS [None]
